FAERS Safety Report 7197843-0 (Version None)
Quarter: 2010Q4

REPORT INFORMATION
  Report Type: 
  Country: None (occurrence: None)
  Receive Date: 20101227
  Receipt Date: 20101221
  Transmission Date: 20110411
  Serious: Yes (Life-Threatening, Hospitalization)
  Sender: FDA-Public Use
  Company Number: CH-SANOFI-AVENTIS-2010SA077315

PATIENT
  Age: 80 Year
  Sex: Female

DRUGS (5)
  1. PLAVIX [Suspect]
     Indication: ARTERIAL DISORDER
     Route: 048
     Dates: end: 20090313
  2. TILUR [Interacting]
     Route: 048
     Dates: end: 20090313
  3. ASPIRIN [Interacting]
     Indication: ARTERIAL DISORDER
     Route: 048
  4. FLUOXETINE [Interacting]
     Route: 048
  5. TRIATEC [Concomitant]
     Indication: ESSENTIAL HYPERTENSION
     Route: 048

REACTIONS (3)
  - DRUG INTERACTION [None]
  - HAEMATEMESIS [None]
  - HAEMORRHAGIC ANAEMIA [None]
